FAERS Safety Report 14853391 (Version 3)
Quarter: 2018Q3

REPORT INFORMATION
  Report Type: Spontaneous
  Country: GB (occurrence: GB)
  Receive Date: 20180507
  Receipt Date: 20180723
  Transmission Date: 20181010
  Serious: Yes (Death, Hospitalization, Other)
  Sender: FDA-Public Use
  Company Number: GB-JNJFOC-20180435433

PATIENT
  Age: 60 Year
  Sex: Female
  Weight: 56.5 kg

DRUGS (1)
  1. DARZALEX [Suspect]
     Active Substance: DARATUMUMAB
     Indication: PLASMA CELL MYELOMA
     Dosage: 1 DOSE
     Route: 042
     Dates: start: 20180319, end: 20180403

REACTIONS (4)
  - Plasma cell myeloma [Fatal]
  - Thrombocytopenic purpura [Unknown]
  - Multiple organ dysfunction syndrome [Fatal]
  - Sepsis [Fatal]

NARRATIVE: CASE EVENT DATE: 20180412
